FAERS Safety Report 11538077 (Version 1)
Quarter: 2015Q3

REPORT INFORMATION
  Report Type: Report from Study
  Country: US (occurrence: US)
  Receive Date: 20150922
  Receipt Date: 20150922
  Transmission Date: 20151125
  Serious: Yes (Other)
  Sender: FDA-Public Use
  Company Number: US-BAXALTA-2015BAX032449

PATIENT
  Sex: Female

DRUGS (2)
  1. HYQVIA [Suspect]
     Active Substance: HUMAN IMMUNOGLOBULIN G\HYALURONIDASE RECOMBINANT HUMAN
     Indication: PRIMARY IMMUNODEFICIENCY SYNDROME
     Dosage: ONCE PER MONTH
     Route: 058
  2. HYQVIA [Suspect]
     Active Substance: HUMAN IMMUNOGLOBULIN G\HYALURONIDASE RECOMBINANT HUMAN
     Dosage: UNK, 1X A MONTH
     Route: 058

REACTIONS (6)
  - Gastroenteritis viral [Recovered/Resolved]
  - Infusion site erythema [Recovered/Resolved]
  - Blood glucose increased [Recovered/Resolved]
  - Infusion site pain [Recovered/Resolved]
  - Discomfort [Recovered/Resolved]
  - Infusion site swelling [Recovered/Resolved]
